FAERS Safety Report 5088632-1 (Version None)
Quarter: 2006Q3

REPORT INFORMATION
  Report Type: 
  Country: None (occurrence: None)
  Receive Date: 20060822
  Receipt Date: 20060712
  Transmission Date: 20061208
  Serious: Yes (Death)
  Sender: FDA-Public Use
  Company Number: 2006BH012866

PATIENT
  Age: 58 Year
  Sex: Male
  Weight: 87.0906 kg

DRUGS (2)
  1. ANTICOAGULANT SODIUM CITRATE SOLUTION 250 ML [Suspect]
     Indication: PLASMAPHERESIS
     Dosage: ONCE; IV
     Route: 042
     Dates: start: 20060710, end: 20060710
  2. SODIUM CHLORIDE 0.9% [Suspect]
     Indication: PLASMAPHERESIS
     Dosage: ONCE; IV
     Route: 042
     Dates: start: 20060710

REACTIONS (3)
  - BLOOD PRESSURE DIASTOLIC DECREASED [None]
  - BODY TEMPERATURE DECREASED [None]
  - SUDDEN DEATH [None]
